FAERS Safety Report 14712627 (Version 3)
Quarter: 2018Q2

REPORT INFORMATION
  Report Type: Report from Study
  Country: DE (occurrence: DE)
  Receive Date: 20180404
  Receipt Date: 20180425
  Transmission Date: 20180711
  Serious: Yes (Disabling)
  Sender: FDA-Public Use
  Company Number: DE-ROCHE-2095507

PATIENT
  Age: 59 Year
  Sex: Female

DRUGS (2)
  1. OLAPARIB. [Suspect]
     Active Substance: OLAPARIB
     Indication: OVARIAN CANCER
     Dosage: DATE OF LAST DOSE ADMINISTARTION BEFORE EVENT: 13/MAR/2018
     Route: 048
     Dates: start: 20170419
  2. BEVACIZUMAB. [Suspect]
     Active Substance: BEVACIZUMAB
     Indication: OVARIAN CANCER
     Dosage: DOSE AT THE TIME SERIOUS ADVERSE EVENT: 15 MG/KG (ADMINISTRATION NUMBER: 22)?DATE OF LAST DOSE ADMIN
     Route: 042
     Dates: start: 20171114

REACTIONS (1)
  - Cardiomyopathy [Not Recovered/Not Resolved]

NARRATIVE: CASE EVENT DATE: 20180313
